FAERS Safety Report 7595410-8 (Version None)
Quarter: 2011Q2

REPORT INFORMATION
  Report Type: 
  Country: None (occurrence: None)
  Receive Date: 20110620
  Receipt Date: 20110506
  Transmission Date: 20111010
  Serious: Yes (Hospitalization)
  Sender: FDA-Public Use
  Company Number: UTC-006919

PATIENT
  Age: 73 Year
  Sex: Female

DRUGS (1)
  1. TYVASO [Suspect]
     Indication: COR PULMONALE CHRONIC
     Dosage: 18-54 MICROGRAM (4 IN 1 D), INHALATION
     Route: 055
     Dates: start: 20101020

REACTIONS (1)
  - CARDIAC FAILURE CONGESTIVE [None]
